FAERS Safety Report 5021039-1 (Version None)
Quarter: 2006Q2

REPORT INFORMATION
  Report Type: 
  Country: None (occurrence: None)
  Receive Date: 20060414
  Receipt Date: 20050811
  Transmission Date: 20061013
  Serious: Yes (Other)
  Sender: FDA-Public Use
  Company Number: US-JNJFOC-20050803385

PATIENT
  Age: 69 Year
  Sex: Male
  Weight: 102.0593 kg

DRUGS (5)
  1. ULTRAM [Suspect]
     Indication: PAIN
     Dosage: 50 MG, 3 IN 1 DAY
     Dates: start: 20021201, end: 20050801
  2. HYDROCHLOROTHIAZIDE (HYDROCHLOROTHIAZIDE) TABLETS [Concomitant]
  3. ATIVAN [Concomitant]
  4. SYNTHROID [Concomitant]
  5. NEURONTIN [Concomitant]

REACTIONS (3)
  - CONVULSION [None]
  - DRUG WITHDRAWAL SYNDROME [None]
  - MUSCLE SPASMS [None]
